FAERS Safety Report 10192624 (Version 2)
Quarter: 2014Q2

REPORT INFORMATION
  Report Type: Report from Study
  Country: AU (occurrence: AU)
  Receive Date: 20140523
  Receipt Date: 20140620
  Transmission Date: 20141212
  Serious: Yes (Hospitalization)
  Sender: FDA-Public Use
  Company Number: AU-ABBVIE-14P-008-1238280-00

PATIENT
  Age: 31 Year
  Sex: Male
  Weight: 97 kg

DRUGS (14)
  1. PREDNISONE [Suspect]
     Indication: UVEITIS
     Route: 048
     Dates: start: 20130731, end: 20131022
  2. CYCLOSPORIN [Concomitant]
     Indication: PRODUCT USED FOR UNKNOWN INDICATION
     Dates: start: 20130226, end: 20131022
  3. CYCLOSPORIN [Concomitant]
     Dates: start: 20131120
  4. PREDNEFERIN FORTE [Concomitant]
     Indication: UVEITIS
     Dates: start: 201301, end: 20130730
  5. PREDNEFERIN FORTE [Concomitant]
     Route: 061
     Dates: start: 201301, end: 20130716
  6. OMEPRAZOLE [Concomitant]
     Indication: GASTROINTESTINAL DISORDER
     Dates: start: 201301, end: 20131022
  7. OMEPRAZOLE [Concomitant]
     Indication: PROPHYLAXIS
  8. BACTRIM DS [Concomitant]
     Indication: INFECTION PROPHYLAXIS
     Dates: start: 201301, end: 20131022
  9. COVERSYL [Concomitant]
     Indication: HYPERTENSION
     Dates: end: 20130730
  10. COVERSYL [Concomitant]
     Indication: PROPHYLAXIS
  11. COMBIGAN [Concomitant]
     Indication: INTRAOCULAR PRESSURE INCREASED
     Dates: start: 20130409, end: 20131022
  12. CORTICOID EYE DROP [Concomitant]
     Indication: PRODUCT USED FOR UNKNOWN INDICATION
  13. CORTICOID EYE DROP [Concomitant]
  14. CORTICOID EYE DROP [Concomitant]
     Dates: start: 20130731

REACTIONS (2)
  - Body temperature increased [Recovered/Resolved]
  - Upper respiratory tract infection [Recovered/Resolved]
